FAERS Safety Report 6359841-6 (Version None)
Quarter: 2009Q3

REPORT INFORMATION
  Report Type: 
  Country: None (occurrence: None)
  Receive Date: 20090917
  Receipt Date: 20090911
  Transmission Date: 20100115
  Serious: Yes (Hospitalization)
  Sender: FDA-Public Use
  Company Number: B0571093C

PATIENT
  Sex: Female
  Weight: 65 kg

DRUGS (2)
  1. TOPOTECAN [Suspect]
     Dosage: 70MGM2 CYCLIC
     Route: 042
     Dates: start: 20090402
  2. PACLITAXEL [Suspect]
     Dosage: 1.75MGM2 CYCLIC
     Route: 042
     Dates: start: 20090402

REACTIONS (4)
  - FISTULA [None]
  - HAEMATEMESIS [None]
  - POST PROCEDURAL HAEMORRHAGE [None]
  - VAGINAL HAEMORRHAGE [None]
